FAERS Safety Report 7775778-X (Version None)
Quarter: 2011Q3

REPORT INFORMATION
  Report Type: 
  Country: None (occurrence: None)
  Receive Date: 20110921
  Receipt Date: 20110701
  Transmission Date: 20111222
  Serious: Yes (Hospitalization)
  Sender: FDA-Public Use
  Company Number: UTC-007549

PATIENT
  Age: 46 Year
  Sex: Female

DRUGS (3)
  1. PLAQUENIL [Concomitant]
  2. TYVASO [Suspect]
     Indication: PULMONARY HYPERTENSION
     Dosage: (18-54 MCGS), INHALATION
     Route: 055
     Dates: start: 20110121, end: 20110521
  3. REVATIO [Concomitant]

REACTIONS (13)
  - HEPATIC VEIN THROMBOSIS [None]
  - ANTIPHOSPHOLIPID SYNDROME [None]
  - SEPSIS [None]
  - INTESTINAL OBSTRUCTION [None]
  - HAEMATURIA [None]
  - ANAEMIA [None]
  - PORTAL VEIN THROMBOSIS [None]
  - ENCEPHALOPATHY [None]
  - CHRONIC HEPATIC FAILURE [None]
  - PULMONARY EMBOLISM [None]
  - INTESTINAL ISCHAEMIA [None]
  - GASTROINTESTINAL HAEMORRHAGE [None]
  - GASTRITIS [None]
